FAERS Safety Report 9870387 (Version 1)
Quarter: 2013Q2

REPORT INFORMATION
  Report Type: Spontaneous
  Country: US (occurrence: None)
  Receive Date: 20121031
  Receipt Date: 20121031
  Transmission Date: 20140414
  Serious: No
  Sender: FDA-Public Use
  Company Number: PHHY2011US54294

PATIENT
  Age: 39 Year
  Sex: Male

DRUGS (1)
  1. GILENYA (FTY) CAPSULE [Suspect]
     Indication: MULTIPLE SCLEROSIS
     Route: 048
     Dates: start: 20110325

REACTIONS (3)
  - Oropharyngeal pain [None]
  - Liver function test abnormal [None]
  - Dysphagia [None]
